FAERS Safety Report 7590107-2 (Version None)
Quarter: 2011Q3

REPORT INFORMATION
  Report Type: 
  Country: None (occurrence: None)
  Receive Date: 20110705
  Receipt Date: 20110627
  Transmission Date: 20111222
  Serious: Yes (Death)
  Sender: FDA-Public Use
  Company Number: B0728833A

PATIENT
  Age: 80 Year
  Sex: Female
  Weight: 76 kg

DRUGS (3)
  1. PROMACTA [Suspect]
     Dates: start: 20101020, end: 20110307
  2. BECLOMETASONE DIPROPIONATE [Concomitant]
  3. ALBUTEROL [Concomitant]

REACTIONS (6)
  - LIVER FUNCTION TEST ABNORMAL [None]
  - NIGHT SWEATS [None]
  - PYREXIA [None]
  - RENAL FAILURE [None]
  - WEIGHT DECREASED [None]
  - MALAISE [None]
